FAERS Safety Report 9950559 (Version 1)
Quarter: 2014Q1

REPORT INFORMATION
  Report Type: Report from Study
  Country: US (occurrence: US)
  Receive Date: 20140304
  Receipt Date: 20140304
  Transmission Date: 20141002
  Serious: No
  Sender: FDA-Public Use
  Company Number: US-ABBVIE-13P-163-1067864-00

PATIENT
  Age: 51 Year
  Sex: Female

DRUGS (3)
  1. HUMIRA [Suspect]
     Indication: CROHN^S DISEASE
     Route: 058
     Dates: start: 201302, end: 201302
  2. HUMIRA [Suspect]
     Route: 058
     Dates: start: 201302, end: 20130404
  3. HUMIRA [Suspect]
     Route: 058
     Dates: start: 20130404

REACTIONS (1)
  - Incorrect dose administered [Not Recovered/Not Resolved]
